FAERS Safety Report 23767654 (Version 1)
Quarter: 2024Q2

REPORT INFORMATION
  Report Type: Report from Study
  Country: CO (occurrence: CO)
  Receive Date: 20240422
  Receipt Date: 20240422
  Transmission Date: 20240716
  Serious: Yes (Hospitalization)
  Sender: FDA-Public Use
  Company Number: CO-002147023-NVSC2024CO059947

PATIENT
  Age: 15 Year
  Sex: Male
  Weight: 63 kg

DRUGS (4)
  1. ELTROMBOPAG OLAMINE [Suspect]
     Active Substance: ELTROMBOPAG OLAMINE
     Indication: Immune thrombocytopenia
     Dosage: 50 MG
     Route: 065
     Dates: start: 20121227, end: 202311
  2. ELTROMBOPAG OLAMINE [Suspect]
     Active Substance: ELTROMBOPAG OLAMINE
     Dosage: 25 MG, QD
     Route: 048
     Dates: start: 202311, end: 202312
  3. ELTROMBOPAG OLAMINE [Suspect]
     Active Substance: ELTROMBOPAG OLAMINE
     Dosage: 25 MG, BID, (IN THE MORNING AND AT NIGHT)
     Route: 048
     Dates: end: 202402
  4. ELTROMBOPAG OLAMINE [Suspect]
     Active Substance: ELTROMBOPAG OLAMINE
     Dosage: UNK
     Route: 065

REACTIONS (4)
  - Platelet count decreased [Recovered/Resolved]
  - Disease recurrence [Unknown]
  - Incorrect dose administered [Unknown]
  - Product supply issue [Unknown]

NARRATIVE: CASE EVENT DATE: 20231101
